FAERS Safety Report 13896157 (Version 1)
Quarter: 2017Q3

REPORT INFORMATION
  Report Type: Spontaneous
  Country: US (occurrence: None)
  Receive Date: 20170816
  Receipt Date: 20170816
  Transmission Date: 20171127
  Serious: Yes (Disabling)
  Sender: FDA-Public Use
  Company Number: None

PATIENT
  Age: 61 Year
  Sex: Female
  Weight: 63.5 kg

DRUGS (4)
  1. PURE EYES STERILE EYES [Suspect]
     Active Substance: GLYCERIN\NAPHAZOLINE HYDROCHLORIDE
  2. ALPRAZOLAM. [Concomitant]
     Active Substance: ALPRAZOLAM
  3. EYEDROPS [Concomitant]
  4. METFORMIN [Concomitant]
     Active Substance: METFORMIN HYDROCHLORIDE

REACTIONS (5)
  - Eye irritation [None]
  - Ocular hyperaemia [None]
  - Eye pain [None]
  - Product packaging issue [None]
  - Suspected product tampering [None]

NARRATIVE: CASE EVENT DATE: 20170703
